FAERS Safety Report 4774026-2 (Version None)
Quarter: 2005Q3

REPORT INFORMATION
  Report Type: 
  Country: None (occurrence: None)
  Receive Date: 20050919
  Receipt Date: 20050907
  Transmission Date: 20060218
  Serious: Yes (Other)
  Sender: FDA-Public Use
  Company Number: HQWYE464814SEP05

PATIENT
  Sex: Female

DRUGS (3)
  1. PREMARIN [Suspect]
     Indication: OESTROGEN REPLACEMENT THERAPY
     Dosage: ORAL
     Route: 048
  2. LEVONORGESTREL [Suspect]
     Indication: HORMONE REPLACEMENT THERAPY
     Dosage: 20 UG 1X PER 24 HR  INTRAUTERINE
     Route: 015
  3. MIRENA [Suspect]
     Indication: HORMONE REPLACEMENT THERAPY
     Dosage: 20 UG 1X PER 24 HR   INTRAUTERINE
     Route: 015

REACTIONS (1)
  - BASAL CELL CARCINOMA [None]
